FAERS Safety Report 20861845 (Version 2)
Quarter: 2022Q2

REPORT INFORMATION
  Report Type: Spontaneous
  Country: JP (occurrence: JP)
  Receive Date: 20220523
  Receipt Date: 20220617
  Transmission Date: 20220720
  Serious: Yes (Hospitalization, Other)
  Sender: FDA-Public Use
  Company Number: JP-ViiV Healthcare Limited-58111

PATIENT

DRUGS (1)
  1. ABACAVIR SULFATE\DOLUTEGRAVIR SODIUM\LAMIVUDINE [Suspect]
     Active Substance: ABACAVIR SULFATE\DOLUTEGRAVIR SODIUM\LAMIVUDINE
     Indication: HIV infection
     Dosage: UNK

REACTIONS (6)
  - Septic shock [Not Recovered/Not Resolved]
  - Urinary tract infection [Unknown]
  - Device related infection [Unknown]
  - Myelodysplastic syndrome [Unknown]
  - Condition aggravated [Unknown]
  - Infection susceptibility increased [Unknown]
